FAERS Safety Report 7243314-2 (Version None)
Quarter: 2011Q1

REPORT INFORMATION
  Report Type: 
  Country: None (occurrence: None)
  Receive Date: 20110125
  Receipt Date: 20100304
  Transmission Date: 20110831
  Serious: Yes (Other)
  Sender: FDA-Public Use
  Company Number: US-BRISTOL-MYERS SQUIBB COMPANY-14957328

PATIENT
  Sex: Male

DRUGS (5)
  1. TAXOTERE [Suspect]
     Indication: NON-SMALL CELL LUNG CANCER
     Route: 042
     Dates: start: 20091216
  2. BENADRYL [Concomitant]
     Indication: PREMEDICATION
     Route: 042
  3. PLATINOL-AQ [Suspect]
     Indication: NON-SMALL CELL LUNG CANCER
     Route: 042
     Dates: start: 20091216
  4. TYLENOL-500 [Concomitant]
     Indication: PREMEDICATION
     Route: 048
  5. ERBITUX [Suspect]
     Indication: NON-SMALL CELL LUNG CANCER
     Dosage: INFUSIONS ON 17DEC09 AND 30DEC09 500MG;09C00017C;05/2012
     Route: 042
     Dates: start: 20091216, end: 20091230

REACTIONS (7)
  - HEART RATE INCREASED [None]
  - FLUSHING [None]
  - RESPIRATORY RATE INCREASED [None]
  - CHILLS [None]
  - DYSPNOEA [None]
  - NECK PAIN [None]
  - PRURITUS [None]
